FAERS Safety Report 4422904-6 (Version None)
Quarter: 2004Q3

REPORT INFORMATION
  Report Type: 
  Country: None (occurrence: None)
  Receive Date: 20040811
  Receipt Date: 20040805
  Transmission Date: 20050211
  Serious: Yes (Other)
  Sender: FDA-Public Use
  Company Number: 200417725GDDC

PATIENT
  Sex: 0

DRUGS (1)
  1. LANTUS [Suspect]

REACTIONS (1)
  - LIVER DISORDER [None]
